FAERS Safety Report 6543684-4 (Version None)
Quarter: 2010Q1

REPORT INFORMATION
  Report Type: 
  Country: None (occurrence: None)
  Receive Date: 20100120
  Receipt Date: 20100115
  Transmission Date: 20100710
  Serious: Yes (Other)
  Sender: FDA-Public Use
  Company Number: GXKR2010DE00791

PATIENT
  Sex: Male

DRUGS (1)
  1. OMEPRAZOLE (NGX) [Suspect]
     Dosage: 40 MG, QD
     Route: 048

REACTIONS (2)
  - MACULAR DEGENERATION [None]
  - VISUAL ACUITY REDUCED [None]
